FAERS Safety Report 5710812-X (Version None)
Quarter: 2008Q2

REPORT INFORMATION
  Report Type: 
  Country: None (occurrence: None)
  Receive Date: 20080417
  Receipt Date: 20080417
  Transmission Date: 20081010
  Serious: No
  Sender: FDA-Public Use
  Company Number: None

PATIENT
  Age: 92 Year
  Sex: Male
  Weight: 85.2762 kg

DRUGS (1)
  1. FLOMAX [Suspect]
     Dosage: 0.4 MG  ONE DAILY P.O.
     Route: 048
     Dates: start: 20080427

REACTIONS (3)
  - FLOPPY IRIS SYNDROME [None]
  - MIOSIS [None]
  - PUPILLARY DISORDER [None]
